FAERS Safety Report 9194345 (Version 2)
Quarter: 2013Q1

REPORT INFORMATION
  Report Type: Spontaneous
  Country: US (occurrence: US)
  Receive Date: 20130327
  Receipt Date: 20130328
  Transmission Date: 20140127
  Serious: Yes (Other)
  Sender: FDA-Public Use
  Company Number: US-RB-051397-13

PATIENT
  Age: 56 Year
  Sex: Female

DRUGS (9)
  1. MUCINEX DM MAXIMUM STRENGTH [Suspect]
     Indication: PRODUCT USED FOR UNKNOWN INDICATION
     Dosage: PATIENT TOOK PRODUCT FOR APPROXIMATELY 3 WEEKS FOR EVERY 12 HOURS.
     Route: 048
     Dates: end: 20130308
  2. ALLEGRA-D [Suspect]
     Indication: COUGH
  3. ALLEGRA-D [Suspect]
     Indication: RESPIRATORY TRACT CONGESTION
  4. BYSTOLLIC [Concomitant]
     Indication: PRODUCT USED FOR UNKNOWN INDICATION
  5. TRANDOLAPRIL [Concomitant]
     Indication: PRODUCT USED FOR UNKNOWN INDICATION
  6. DHEA HORMONE [Concomitant]
     Indication: PRODUCT USED FOR UNKNOWN INDICATION
  7. ANGELIQ HORMONE [Concomitant]
     Indication: PRODUCT USED FOR UNKNOWN INDICATION
  8. ASPIRIN [Concomitant]
     Indication: PRODUCT USED FOR UNKNOWN INDICATION
  9. ACE INHIBITORS [Concomitant]
     Indication: PRODUCT USED FOR UNKNOWN INDICATION

REACTIONS (6)
  - Loss of consciousness [Unknown]
  - Disorientation [Unknown]
  - Head discomfort [Unknown]
  - Dizziness [Unknown]
  - Fall [Unknown]
  - Incorrect drug administration duration [Unknown]
